FAERS Safety Report 5585099-1 (Version None)
Quarter: 2008Q1

REPORT INFORMATION
  Report Type: 
  Country: None (occurrence: None)
  Receive Date: 20080109
  Receipt Date: 20080104
  Transmission Date: 20080703
  Serious: Yes (Hospitalization)
  Sender: FDA-Public Use
  Company Number: US-BOEHRINGER INGELHEIM PHARMACEUTICALS, INC.-2008-BP-00253BP

PATIENT

DRUGS (1)
  1. AGGRENOX [Suspect]

REACTIONS (1)
  - HEPATOTOXICITY [None]
